FAERS Safety Report 7385504-4 (Version None)
Quarter: 2011Q1

REPORT INFORMATION
  Report Type: 
  Country: None (occurrence: None)
  Receive Date: 20110330
  Receipt Date: 20110324
  Transmission Date: 20110831
  Serious: Yes (Hospitalization)
  Sender: FDA-Public Use
  Company Number: GR-BRISTOL-MYERS SQUIBB COMPANY-15432925

PATIENT
  Age: 60 Year
  Sex: Male

DRUGS (6)
  1. MAXIPIME [Suspect]
     Indication: NOSOCOMIAL INFECTION
     Route: 042
     Dates: start: 20101117, end: 20101124
  2. ESMOLOL HCL [Concomitant]
  3. FRAXIPARINE [Concomitant]
     Dosage: ONLY 2 DOSES WERE RECEIVED
     Route: 058
     Dates: start: 20101121, end: 20101122
  4. BREVIBLOC [Concomitant]
     Indication: TACHYCARDIA
     Route: 042
     Dates: start: 20101118, end: 20101119
  5. KEPPRA [Concomitant]
     Indication: BRAIN INJURY
     Route: 042
     Dates: start: 20101103, end: 20101124
  6. BRIKLIN [Suspect]
     Indication: RESPIRATORY TRACT INFECTION
     Route: 042
     Dates: start: 20101117, end: 20101124

REACTIONS (1)
  - THROMBOCYTOPENIA [None]
